FAERS Safety Report 17909101 (Version 2)
Quarter: 2020Q3

REPORT INFORMATION
  Report Type: Spontaneous
  Country: GB (occurrence: GB)
  Receive Date: 20200617
  Receipt Date: 20200708
  Transmission Date: 20201103
  Serious: Yes (Other)
  Sender: FDA-Public Use
  Company Number: GB-ANIPHARMA-2020-UK-000129

PATIENT
  Age: 40 Year
  Sex: Male

DRUGS (6)
  1. LISINOPRIL. [Suspect]
     Active Substance: LISINOPRIL
     Dosage: 10 MG UNKNOWN FREQUENCY
     Route: 048
     Dates: start: 2019
  2. OMEGA?3?ACID ETHYL ESTERS. [Concomitant]
     Active Substance: OMEGA-3-ACID ETHYL ESTERS
     Route: 065
  3. COLECALCIFEROL [Concomitant]
     Active Substance: CHOLECALCIFEROL
     Route: 065
  4. CANDESARTAN. [Suspect]
     Active Substance: CANDESARTAN
     Indication: HYPERTENSION
     Dosage: 16 MG DAILY
     Route: 048
     Dates: start: 2017
  5. VITAMIN D [Concomitant]
     Active Substance: VITAMIN D NOS
     Route: 065
  6. CENTRUM [Concomitant]
     Active Substance: VITAMINS
     Route: 065

REACTIONS (5)
  - Abnormal behaviour [Unknown]
  - Anxiety [Unknown]
  - Disturbance in sexual arousal [Not Recovered/Not Resolved]
  - Hallucination, auditory [Unknown]
  - Heart rate increased [Unknown]

NARRATIVE: CASE EVENT DATE: 202005
